FAERS Safety Report 8762175 (Version 4)
Quarter: 2012Q4

REPORT INFORMATION
  Report Type: Report from Study
  Country: JP (occurrence: JP)
  Receive Date: 20120829
  Receipt Date: 20121221
  Transmission Date: 20130627
  Serious: Yes (Death, Life-Threatening, Hospitalization, Other)
  Sender: FDA-Public Use
  Company Number: JP-PFIZER INC-2012208042

PATIENT
  Age: 64 Year
  Sex: Female
  Weight: 37 kg

DRUGS (9)
  1. XALKORI [Suspect]
     Indication: NON-SMALL CELL LUNG CANCER
     Dosage: 250 mg, 2x/day
     Route: 048
     Dates: start: 20120810, end: 20120813
  2. XALKORI [Suspect]
     Dosage: 250 mg, 2x/day
     Route: 048
     Dates: start: 20120815, end: 20120820
  3. OXYCONTIN [Concomitant]
     Dosage: 20 mg, 2x/day
     Route: 048
     Dates: start: 20120719, end: 20120825
  4. MYSLEE [Concomitant]
     Dosage: 10 mg, 1x/day
     Route: 048
     Dates: start: 20120612, end: 20120825
  5. SENNARIDE [Concomitant]
     Dosage: 12 mg, as needed
     Route: 048
     Dates: start: 20120706, end: 20120816
  6. HYPEN [Concomitant]
     Dosage: 300 mg, 2x/day
     Route: 048
     Dates: start: 20120702, end: 20120909
  7. TAKEPRON [Concomitant]
     Dosage: 15 mg, 1x/day
     Route: 048
     Dates: start: 20120702, end: 20120917
  8. ASTOMIN [Concomitant]
     Dosage: 10 mg, 3x/day
     Route: 048
     Dates: start: 20120815, end: 20120919
  9. DOGMATYL [Concomitant]
     Dosage: 0.5 g, 3x/day
     Route: 048
     Dates: start: 20120819, end: 20120919

REACTIONS (3)
  - Interstitial lung disease [Recovering/Resolving]
  - Disease progression [Fatal]
  - Non-small cell lung cancer [Fatal]
